FAERS Safety Report 18428409 (Version 2)
Quarter: 2020Q4

REPORT INFORMATION
  Report Type: Spontaneous
  Country: US (occurrence: US)
  Receive Date: 20201026
  Receipt Date: 20201221
  Transmission Date: 20210114
  Serious: No
  Sender: FDA-Public Use
  Company Number: US-BIOHAVEN PHARMACEUTICALS-2020BHV00389

PATIENT
  Age: 57 Year
  Sex: Male
  Weight: 113.38 kg

DRUGS (5)
  1. ^UNSPECIFIED MOAB^ [Suspect]
     Active Substance: UNSPECIFIED INGREDIENT
     Indication: MIGRAINE
  2. AJOVY [Concomitant]
     Active Substance: FREMANEZUMAB-VFRM
     Dosage: UNK
     Dates: start: 202006
  3. METOPROLOL. [Concomitant]
     Active Substance: METOPROLOL
  4. NURTEC ODT [Suspect]
     Active Substance: RIMEGEPANT SULFATE
     Indication: MIGRAINE
     Dosage: UNK, TWICE AS NEEDED
     Route: 048
     Dates: start: 202007
  5. RELPAX [Concomitant]
     Active Substance: ELETRIPTAN HYDROBROMIDE

REACTIONS (2)
  - Therapeutic product effect delayed [Not Recovered/Not Resolved]
  - Therapeutic product effect incomplete [Not Recovered/Not Resolved]

NARRATIVE: CASE EVENT DATE: 202007
